FAERS Safety Report 6528243-1 (Version None)
Quarter: 2010Q1

REPORT INFORMATION
  Report Type: 
  Country: None (occurrence: None)
  Receive Date: 20100106
  Receipt Date: 20091204
  Transmission Date: 20100710
  Serious: No
  Sender: FDA-Public Use
  Company Number: US-BAYER-200928889NA

PATIENT
  Age: 70 Year
  Sex: Male

DRUGS (3)
  1. CAMPATH [Suspect]
     Indication: CHRONIC LYMPHOCYTIC LEUKAEMIA
     Dosage: INITIAL DOSE
     Route: 042
     Dates: start: 20090701, end: 20090701
  2. CAMPATH [Suspect]
     Dosage: TOTAL DAILY DOSE: 10 MG
     Route: 042
     Dates: start: 20090731, end: 20090921
  3. PREMEDICATION [Concomitant]

REACTIONS (3)
  - ANXIETY [None]
  - DYSPNOEA [None]
  - INFUSION RELATED REACTION [None]
